FAERS Safety Report 17346873 (Version 1)
Quarter: 2020Q1

REPORT INFORMATION
  Report Type: Report from Study
  Country: US (occurrence: US)
  Receive Date: 20200129
  Receipt Date: 20200129
  Transmission Date: 20200409
  Serious: No
  Sender: FDA-Public Use
  Company Number: US-EXELIXIS-CABO-19022052

PATIENT
  Sex: Male

DRUGS (2)
  1. CABOMETYX [Suspect]
     Active Substance: CABOZANTINIB S-MALATE
     Indication: RENAL CANCER
     Dosage: 60 MG, QD
     Route: 048
     Dates: start: 20171102
  2. CABOMETYX [Suspect]
     Active Substance: CABOZANTINIB S-MALATE
     Dosage: 20 MG, QD
     Route: 048

REACTIONS (18)
  - Blood albumin decreased [Unknown]
  - Neutrophil percentage decreased [Unknown]
  - Red blood cell count decreased [Unknown]
  - Pulmonary embolism [Unknown]
  - Red cell distribution width increased [Unknown]
  - Monocyte percentage increased [Unknown]
  - Blood creatinine increased [Unknown]
  - Mean platelet volume increased [Unknown]
  - Blood thyroid stimulating hormone increased [Unknown]
  - Metastases to bone [Unknown]
  - Mean cell volume increased [Unknown]
  - Blood chloride increased [Unknown]
  - Lymphocyte percentage increased [Unknown]
  - Mean cell haemoglobin increased [Unknown]
  - Glomerular filtration rate decreased [Unknown]
  - Prothrombin time prolonged [Unknown]
  - Activated partial thromboplastin time prolonged [Unknown]
  - Deep vein thrombosis [Unknown]
